FAERS Safety Report 12597686 (Version 6)
Quarter: 2016Q3

REPORT INFORMATION
  Report Type: Report from Study
  Country: AR (occurrence: AR)
  Receive Date: 20160726
  Receipt Date: 20160915
  Transmission Date: 20161109
  Serious: Yes (Other)
  Sender: FDA-Public Use
  Company Number: AR-ABBVIE-16K-007-1684617-00

PATIENT
  Age: 50 Year
  Sex: Female

DRUGS (1)
  1. HUMIRA [Suspect]
     Active Substance: ADALIMUMAB
     Indication: RHEUMATOID ARTHRITIS
     Route: 058
     Dates: start: 20150720, end: 201605

REACTIONS (5)
  - Benign muscle neoplasm [Not Recovered/Not Resolved]
  - Procedural pain [Unknown]
  - Neoplasm [Not Recovered/Not Resolved]
  - Purulent synovitis [Unknown]
  - Synovial cyst [Unknown]

NARRATIVE: CASE EVENT DATE: 201510
